FAERS Safety Report 20627516 (Version 1)
Quarter: 2022Q1

REPORT INFORMATION
  Report Type: Report from Study
  Country: CA (occurrence: None)
  Receive Date: 20220323
  Receipt Date: 20220323
  Transmission Date: 20220423
  Serious: Yes (Death)
  Sender: FDA-Public Use
  Company Number: 2022A119615

PATIENT
  Sex: Female

DRUGS (14)
  1. FASENRA [Suspect]
     Active Substance: BENRALIZUMAB
     Indication: Asthma
     Route: 058
     Dates: start: 20190417
  2. REACTINE [Concomitant]
  3. PANTOPRAZOLE [Concomitant]
     Active Substance: PANTOPRAZOLE
  4. URSODIOL [Concomitant]
     Active Substance: URSODIOL
  5. LOSARTAN [Concomitant]
     Active Substance: LOSARTAN
  6. NASONEX [Concomitant]
     Active Substance: MOMETASONE FUROATE
  7. ZENHALE [Concomitant]
     Active Substance: FORMOTEROL FUMARATE\MOMETASONE FUROATE
  8. ALVESCO [Concomitant]
     Active Substance: CICLESONIDE
  9. ALBUTEROL [Concomitant]
     Active Substance: ALBUTEROL
  10. METFORMIN [Concomitant]
     Active Substance: METFORMIN HYDROCHLORIDE
  11. HYDROCHLOROTHIAZIDE [Concomitant]
     Active Substance: HYDROCHLOROTHIAZIDE
  12. PROLIA [Concomitant]
     Active Substance: DENOSUMAB
  13. ANTI-BIOTICS [Concomitant]
  14. PREDNISONE [Concomitant]
     Active Substance: PREDNISONE

REACTIONS (1)
  - Death [Fatal]
